FAERS Safety Report 7762219-1 (Version None)
Quarter: 2011Q3

REPORT INFORMATION
  Report Type: 
  Country: None (occurrence: None)
  Receive Date: 20110920
  Receipt Date: 20110916
  Transmission Date: 20111222
  Serious: Yes (Other)
  Sender: FDA-Public Use
  Company Number: US-PFIZER INC-2011220001

PATIENT
  Sex: Female

DRUGS (2)
  1. TYLENOL-500 [Suspect]
     Indication: PAIN
     Dosage: UNK
  2. CELEBREX [Suspect]
     Dosage: UNK

REACTIONS (2)
  - DRUG INEFFECTIVE [None]
  - ATRIAL FIBRILLATION [None]
